FAERS Safety Report 10029132 (Version 4)
Quarter: 2014Q2

REPORT INFORMATION
  Report Type: Spontaneous
  Country: FR (occurrence: FR)
  Receive Date: 20140321
  Receipt Date: 20140617
  Transmission Date: 20141212
  Serious: Yes (Congenital Anomaly, Other)
  Sender: FDA-Public Use
  Company Number: FR-GILEAD-2014-0096918

PATIENT
  Sex: 0

DRUGS (3)
  1. VIREAD [Suspect]
     Indication: HEPATITIS B
     Dosage: 1 DF, QD
     Route: 064
     Dates: start: 201204
  2. LARGACTIL                          /00011901/ [Concomitant]
     Indication: VOMITING
     Dosage: UNK
     Route: 064
     Dates: start: 20131129, end: 201402
  3. VOGALENE [Concomitant]
     Indication: VOMITING
     Route: 064

REACTIONS (1)
  - Phalangeal agenesis [Not Recovered/Not Resolved]
